FAERS Safety Report 17382289 (Version 1)
Quarter: 2020Q1

REPORT INFORMATION
  Report Type: Spontaneous
  Country: US (occurrence: US)
  Receive Date: 20200206
  Receipt Date: 20200206
  Transmission Date: 20200409
  Serious: Yes (Other)
  Sender: FDA-Public Use
  Company Number: US-SA-2020SA026547

PATIENT
  Age: 43 Year
  Sex: Female
  Weight: 52.61 kg

DRUGS (4)
  1. B COMPLEX [AMINOBENZOIC ACID;BIOTIN;CALCIUM PANTOTHENATE;CHOLINE BITAR [Concomitant]
     Dosage: UNK, UNK
     Route: 065
  2. AUBAGIO [Suspect]
     Active Substance: TERIFLUNOMIDE
     Indication: MULTIPLE SCLEROSIS
     Dosage: 14 MG, QD
     Route: 048
     Dates: start: 2019
  3. VITAMIN D3 [Concomitant]
     Active Substance: CHOLECALCIFEROL
     Dosage: UNK, UNK
     Route: 065
  4. MELATONIN [Concomitant]
     Active Substance: MELATONIN
     Dosage: UNK, UNK
     Route: 065

REACTIONS (10)
  - Joint swelling [Unknown]
  - Gingivitis [Unknown]
  - Ankle fracture [Unknown]
  - Fall [Unknown]
  - Poor peripheral circulation [Unknown]
  - Haemorrhoids [Unknown]
  - Root canal infection [Unknown]
  - Diarrhoea [Unknown]
  - Pneumonia [Unknown]
  - Alopecia [Unknown]

NARRATIVE: CASE EVENT DATE: 2019
